FAERS Safety Report 24844615 (Version 2)
Quarter: 2025Q1

REPORT INFORMATION
  Report Type: Spontaneous
  Country: NL (occurrence: NL)
  Receive Date: 20250115
  Receipt Date: 20250127
  Transmission Date: 20250409
  Serious: Yes (Other)
  Sender: TEVA
  Company Number: NL-TEVA-VS-3285163

PATIENT
  Age: 70 Year
  Sex: Male

DRUGS (2)
  1. PREDNISONE [Suspect]
     Active Substance: PREDNISONE
     Indication: Autoimmune pancreatitis
     Route: 065
  2. AZATHIOPRINE [Concomitant]
     Active Substance: AZATHIOPRINE
     Indication: Autoimmune pancreatitis
     Route: 065

REACTIONS (2)
  - Immunoglobulin G4 related disease [Recovering/Resolving]
  - Rebound effect [Unknown]
